FAERS Safety Report 9563130 (Version 2)
Quarter: 2014Q3

REPORT INFORMATION
  Report Type: Spontaneous
  Country: US (occurrence: US)
  Receive Date: 20130927
  Receipt Date: 20140818
  Transmission Date: 20150326
  Serious: Yes (Hospitalization, Other)
  Sender: FDA-Public Use
  Company Number: US-009507513-1309USA013636

PATIENT
  Sex: Female
  Weight: 113.83 kg

DRUGS (1)
  1. NUVARING [Suspect]
     Active Substance: ETHINYL ESTRADIOL\ETONOGESTREL
     Dosage: UNK
     Route: 067
     Dates: start: 201201

REACTIONS (20)
  - Back pain [Unknown]
  - Embolic stroke [Unknown]
  - Memory impairment [Unknown]
  - Mydriasis [Unknown]
  - Abdominal pain [Unknown]
  - Headache [Unknown]
  - Malaise [Unknown]
  - Atrial septal defect [Unknown]
  - Genitourinary tract neoplasm [Unknown]
  - Cervical dysplasia [Unknown]
  - Gestational hypertension [Unknown]
  - Blindness [Unknown]
  - Sleep apnoea syndrome [Unknown]
  - Thyroid disorder [Unknown]
  - Migraine with aura [Unknown]
  - Diabetes mellitus [Unknown]
  - Uterine leiomyoma [Unknown]
  - Menometrorrhagia [Unknown]
  - Fatigue [Unknown]
  - Dysmenorrhoea [Unknown]

NARRATIVE: CASE EVENT DATE: 20120603
